FAERS Safety Report 8072857-7 (Version None)
Quarter: 2012Q1

REPORT INFORMATION
  Report Type: 
  Country: None (occurrence: None)
  Receive Date: 20120126
  Receipt Date: 20120123
  Transmission Date: 20120608
  Serious: Yes (Other)
  Sender: FDA-Public Use
  Company Number: DK-PFIZER INC-2012017868

PATIENT
  Sex: Female

DRUGS (2)
  1. METOPROLOL SUCCINATE [Concomitant]
     Dosage: UNK
     Dates: start: 20110101
  2. VARENICLINE TARTRATE [Suspect]

REACTIONS (4)
  - LIMB INJURY [None]
  - FALL [None]
  - HEAD INJURY [None]
  - NIGHTMARE [None]
